FAERS Safety Report 5944246-X (Version None)
Quarter: 2008Q4

REPORT INFORMATION
  Report Type: 
  Country: None (occurrence: None)
  Receive Date: 20081104
  Receipt Date: 20081020
  Transmission Date: 20090506
  Serious: Yes (Hospitalization)
  Sender: FDA-Public Use
  Company Number: 2008002748

PATIENT
  Age: 82 Year
  Sex: Female

DRUGS (2)
  1. TARCEVA [Suspect]
     Indication: LUNG NEOPLASM MALIGNANT
     Dosage: 100 MG, QD, ORAL; 100 MG, QOD, ORAL
     Route: 048
     Dates: start: 20080823, end: 20081007
  2. TARCEVA [Suspect]
     Indication: LUNG NEOPLASM MALIGNANT
     Dosage: 100 MG, QD, ORAL; 100 MG, QOD, ORAL
     Route: 048
     Dates: start: 20081012

REACTIONS (15)
  - ANOREXIA [None]
  - BLOOD ELECTROLYTES DECREASED [None]
  - BLOOD POTASSIUM DECREASED [None]
  - BREATH ODOUR [None]
  - DIARRHOEA [None]
  - EYE IRRITATION [None]
  - EYE SWELLING [None]
  - KIDNEY INFECTION [None]
  - NAUSEA [None]
  - NO THERAPEUTIC RESPONSE [None]
  - OCULAR HYPERAEMIA [None]
  - PAIN OF SKIN [None]
  - RASH [None]
  - URINARY RETENTION [None]
  - WEIGHT DECREASED [None]
